FAERS Safety Report 9448988 (Version 2)
Quarter: 2014Q1

REPORT INFORMATION
  Report Type: Spontaneous
  Country: US (occurrence: US)
  Receive Date: 20130808
  Receipt Date: 20140117
  Transmission Date: 20141002
  Serious: Yes (Death, Hospitalization, Other)
  Sender: FDA-Public Use
  Company Number: US-B.I. PHARMACEUTICALS,INC./RIDGEFIELD-2013-BI-24025BP

PATIENT
  Age: 70 Year
  Sex: Male
  Weight: 72.57 kg

DRUGS (8)
  1. PRADAXA [Suspect]
     Indication: ATRIAL FIBRILLATION
     Dosage: 300 MG
     Route: 048
     Dates: start: 20110214, end: 20130108
  2. IRON [Concomitant]
  3. DILTIAZEM [Concomitant]
  4. FLECAINIDE [Concomitant]
     Dosage: 200 MG
     Route: 048
  5. LASIX [Concomitant]
     Dosage: 160 MG
  6. POTASSIUM [Concomitant]
     Dosage: 20 MEQ
  7. OMEPRAZOLE [Concomitant]
     Dosage: 40 MEQ
  8. REVATIO [Concomitant]
     Indication: PULMONARY HYPERTENSION
     Dosage: 40 MEQ

REACTIONS (6)
  - Multi-organ failure [Fatal]
  - Acute respiratory failure [Unknown]
  - Upper gastrointestinal haemorrhage [Unknown]
  - Coagulopathy [Unknown]
  - Epistaxis [Recovered/Resolved]
  - Haematuria [Unknown]
